FAERS Safety Report 4621035-X (Version None)
Quarter: 2005Q1

REPORT INFORMATION
  Report Type: 
  Country: None (occurrence: None)
  Receive Date: 20050325
  Receipt Date: 20050204
  Transmission Date: 20050727
  Serious: No
  Sender: FDA-Public Use
  Company Number: 2005AP00927

PATIENT
  Age: 73 Year
  Sex: Male
  Weight: 70 kg

DRUGS (1)
  1. CANDESARTAN CILEXETIL [Suspect]
     Dosage: 8 MG ONCE PO
     Route: 048
     Dates: end: 20030402

REACTIONS (2)
  - NEPHRITIS [None]
  - RASH [None]
